FAERS Safety Report 7065351-3 (Version None)
Quarter: 2010Q4

REPORT INFORMATION
  Report Type: 
  Country: None (occurrence: None)
  Receive Date: 20101027
  Receipt Date: 20101015
  Transmission Date: 20110411
  Serious: Yes (Hospitalization)
  Sender: FDA-Public Use
  Company Number: DE-WATSON-2010-14052

PATIENT
  Sex: Male
  Weight: 140 kg

DRUGS (3)
  1. AMLODIPINE BESYLATE [Suspect]
     Indication: HYPERTENSION
     Dosage: UNK
  2. DAFIRO [Suspect]
     Indication: HYPERTENSION
     Dosage: UNK
     Dates: start: 20100804
  3. VALSARTAN [Suspect]
     Indication: HYPERTENSION
     Dosage: UNK

REACTIONS (2)
  - DRUG ADMINISTRATION ERROR [None]
  - HAEMOLYTIC ANAEMIA [None]
